FAERS Safety Report 5919818-9 (Version None)
Quarter: 2008Q4

REPORT INFORMATION
  Report Type: 
  Country: None (occurrence: None)
  Receive Date: 20081010
  Receipt Date: 20080927
  Transmission Date: 20090506
  Serious: Yes (Hospitalization)
  Sender: FDA-Public Use
  Company Number: 08-043

PATIENT
  Sex: Male

DRUGS (7)
  1. CEFEPIME [Suspect]
     Indication: POST PROCEDURAL INFECTION
     Dosage: 6 GRAMS PER DAY,
  2. FLUIDIONE [Concomitant]
  3. DIGOXIN [Concomitant]
  4. ACETYLSALICYLIC ACID SRT [Concomitant]
  5. LOSARTAN [Concomitant]
  6. AMLODIPINE [Concomitant]
  7. AMIKACIN [Concomitant]

REACTIONS (4)
  - MYOCLONUS [None]
  - OVERDOSE [None]
  - STATUS EPILEPTICUS [None]
  - TOXIC ENCEPHALOPATHY [None]
